FAERS Safety Report 14432638 (Version 1)
Quarter: 2018Q1

REPORT INFORMATION
  Report Type: Spontaneous
  Country: GB (occurrence: GB)
  Receive Date: 20180124
  Receipt Date: 20180124
  Transmission Date: 20180509
  Serious: Yes (Other)
  Sender: FDA-Public Use
  Company Number: GB-ELI_LILLY_AND_COMPANY-GB201801005933

PATIENT
  Age: 53 Year
  Sex: Male
  Weight: 87 kg

DRUGS (19)
  1. PEPPERMINT OIL [Concomitant]
     Active Substance: PEPPERMINT OIL
     Dosage: 2 DF, DAILY
     Dates: start: 20110816
  2. EVACAL D3 [Concomitant]
     Dosage: 2 DF, DAILY
     Dates: start: 20170703
  3. NEVIRAPINE. [Concomitant]
     Active Substance: NEVIRAPINE
     Dosage: 2 DF, DAILY
     Dates: start: 20050627
  4. CIALIS [Concomitant]
     Active Substance: TADALAFIL
     Dosage: 2 DF, DAILY
     Dates: start: 20170519
  5. CODEINE PHOSPHATE [Concomitant]
     Active Substance: CODEINE PHOSPHATE
     Dosage: UNK UNK, EVERY 6 HRS
     Dates: start: 20171009, end: 20171023
  6. LANSOPRAZOLE. [Concomitant]
     Active Substance: LANSOPRAZOLE
     Dosage: 1 DF, DAILY
     Dates: start: 20090930
  7. ALFUZOSIN [Concomitant]
     Active Substance: ALFUZOSIN
     Dosage: 1 DF, DAILY
     Dates: start: 20160810
  8. MEBEVERINE HYDROCHLORIDE [Concomitant]
     Active Substance: MEBEVERINE HYDROCHLORIDE
     Dosage: 2 DF, DAILY
     Dates: start: 20160212
  9. ACICLOVIR [Concomitant]
     Active Substance: ACYCLOVIR
     Dosage: 1 DF, DAILY
     Route: 065
     Dates: start: 20151030
  10. FENOFIBRATE. [Concomitant]
     Active Substance: FENOFIBRATE
     Dosage: 1 DF, DAILY
     Dates: start: 20170206
  11. ROSUVASTATIN. [Concomitant]
     Active Substance: ROSUVASTATIN
     Dosage: 1 DF, DAILY
     Dates: start: 20170726
  12. CLOPIDOGREL [Concomitant]
     Active Substance: CLOPIDOGREL BISULFATE
     Dosage: 1 DF, DAILY
     Dates: start: 20130609
  13. LAXIDO [Concomitant]
     Active Substance: POLYETHYLENE GLYCOL 3350\POTASSIUM CHLORIDE\SODIUM BICARBONATE\SODIUM CHLORIDE
     Indication: CONSTIPATION
     Dosage: UNK UNK, OTHER
     Dates: start: 20171026, end: 20171105
  14. DULOXETINE HYDROCHLORIDE. [Suspect]
     Active Substance: DULOXETINE HYDROCHLORIDE
     Indication: PRODUCT USED FOR UNKNOWN INDICATION
     Dosage: UNK UNK, UNKNOWN
     Route: 065
  15. COCODAMOL [Concomitant]
     Active Substance: ACETAMINOPHEN\CODEINE PHOSPHATE
     Dosage: UNK UNK, EVERY 6 HRS
     Dates: start: 20160810, end: 20171009
  16. PREGABALIN. [Concomitant]
     Active Substance: PREGABALIN
     Dosage: 3 DF, DAILY
     Dates: start: 20160622
  17. NAPROXEN. [Concomitant]
     Active Substance: NAPROXEN
     Dosage: 1 DF, BID
     Dates: start: 20160601, end: 20171009
  18. TRUVADA [Concomitant]
     Active Substance: EMTRICITABINE\TENOFOVIR DISOPROXIL FUMARATE
     Dosage: 1 DF, UNKNOWN
     Dates: start: 20080422
  19. ZOPICLONE [Concomitant]
     Active Substance: ZOPICLONE
     Dosage: 1 DF, EACH EVENING
     Dates: start: 20140916

REACTIONS (1)
  - Cutaneous vasculitis [Recovering/Resolving]

NARRATIVE: CASE EVENT DATE: 20180102
